FAERS Safety Report 21167478 (Version 6)
Quarter: 2022Q3

REPORT INFORMATION
  Report Type: Report from Study
  Country: CR (occurrence: CR)
  Receive Date: 20220803
  Receipt Date: 20220926
  Transmission Date: 20221026
  Serious: Yes (Other)
  Sender: FDA-Public Use
  Company Number: CR-NOVARTISPH-NVSC2022CR172605

PATIENT
  Sex: Female

DRUGS (5)
  1. KISQALI [Suspect]
     Active Substance: RIBOCICLIB
     Indication: Breast cancer
     Dosage: 600 MG, QD
     Route: 048
     Dates: start: 20220414
  2. KISQALI [Suspect]
     Active Substance: RIBOCICLIB
     Dosage: 600 MG, QD
     Route: 048
     Dates: start: 202205
  3. KISQALI [Suspect]
     Active Substance: RIBOCICLIB
     Dosage: 600 MG, QD
     Route: 048
     Dates: start: 20220623
  4. KISQALI [Suspect]
     Active Substance: RIBOCICLIB
     Dosage: 600 MG, QD
     Route: 048
     Dates: start: 202206
  5. KISQALI [Suspect]
     Active Substance: RIBOCICLIB
     Dosage: 600 MG, QD
     Route: 048

REACTIONS (16)
  - Lip and/or oral cavity cancer [Unknown]
  - Second primary malignancy [Unknown]
  - Sjogren^s syndrome [Unknown]
  - Gastrointestinal ulcer [Unknown]
  - Pain [Unknown]
  - Anaemia [Unknown]
  - Oropharyngeal pain [Unknown]
  - Dry eye [Unknown]
  - Weight decreased [Unknown]
  - Decreased immune responsiveness [Unknown]
  - Mouth ulceration [Unknown]
  - Aphthous ulcer [Unknown]
  - Feeding disorder [Unknown]
  - General physical health deterioration [Unknown]
  - Decreased appetite [Unknown]
  - Alopecia [Unknown]
